FAERS Safety Report 15771869 (Version 2)
Quarter: 2019Q1

REPORT INFORMATION
  Report Type: Spontaneous
  Country: US (occurrence: US)
  Receive Date: 20181228
  Receipt Date: 20190215
  Transmission Date: 20190417
  Serious: No
  Sender: FDA-Public Use
  Company Number: US-SA-2018SA393411

PATIENT
  Age: 51 Year
  Sex: Female

DRUGS (2)
  1. SOLIQUA 100/33 [Suspect]
     Active Substance: INSULIN GLARGINE\LIXISENATIDE
     Dosage: 20 IU, QD
  2. SOLOSTAR [Suspect]
     Active Substance: DEVICE

REACTIONS (1)
  - Blood glucose abnormal [Unknown]
